FAERS Safety Report 6917203-4 (Version None)
Quarter: 2010Q3

REPORT INFORMATION
  Report Type: 
  Country: None (occurrence: None)
  Receive Date: 20100804
  Receipt Date: 20100722
  Transmission Date: 20110219
  Serious: Yes (Other)
  Sender: FDA-Public Use
  Company Number: 7011699

PATIENT
  Age: 34 Year
  Sex: Female

DRUGS (3)
  1. GONAL-F RFF [Suspect]
     Indication: ASSISTED FERTILISATION
     Dosage: SUBCUTANEOUS
     Route: 058
     Dates: start: 20100325, end: 20100401
  2. ESTRADIOL [Suspect]
     Indication: ASSISTED FERTILISATION
     Dosage: 1 DF, 1 IN 1 D, ORAL
     Route: 048
     Dates: start: 20100314, end: 20100324
  3. ORGALUTRAN (GANIRELIX) [Suspect]
     Indication: ASSISTED FERTILISATION
     Dosage: 1 DF, 1  IN 1 D
     Dates: start: 20100325, end: 20100401

REACTIONS (2)
  - ERYTHEMA MULTIFORME [None]
  - NO THERAPEUTIC RESPONSE [None]
